FAERS Safety Report 9379277 (Version 1)
Quarter: 2013Q2

REPORT INFORMATION
  Report Type: Spontaneous
  Country: US (occurrence: None)
  Receive Date: 20130410
  Receipt Date: 20130410
  Transmission Date: 20140414
  Serious: Yes (Death, Hospitalization, Other)
  Sender: FDA-Public Use
  Company Number: VAL_02282_2013

PATIENT
  Sex: Male

DRUGS (7)
  1. METOPROLOL [Suspect]
     Indication: PRODUCT USED FOR UNKNOWN INDICATION
     Route: 064
  2. AMIODARONE [Suspect]
     Indication: PRODUCT USED FOR UNKNOWN INDICATION
     Route: 064
  3. CILOSTAZOL [Suspect]
     Indication: PRODUCT USED FOR UNKNOWN INDICATION
     Route: 064
  4. ISOPRENALINE [Suspect]
     Indication: PRODUCT USED FOR UNKNOWN INDICATION
     Dosage: DF [ TITRATED FROM 0.25 TO 1.0 MCG/MIN]
     Route: 064
  5. MAGNESIUM [Suspect]
     Indication: PRODUCT USED FOR UNKNOWN INDICATION
     Dosage: DF [CONTINUOUS DRIP UP TO 2 G/HOUR]
     Route: 064
  6. QUINAGLUTE [Suspect]
     Route: 064
  7. ESMOLOL [Suspect]
     Indication: PRODUCT USED FOR UNKNOWN INDICATION
     Dosage: [50 MCG/KG/MIN]
     Route: 064

REACTIONS (10)
  - Exposure during pregnancy [None]
  - Ventricular tachycardia [None]
  - Torsade de pointes [None]
  - Caesarean section [None]
  - Apnoea neonatal [None]
  - Contusion [None]
  - Premature baby [None]
  - Ventricular extrasystoles [None]
  - Sudden infant death syndrome [None]
  - Sudden cardiac death [None]
